FAERS Safety Report 4665551-3 (Version None)
Quarter: 2005Q2

REPORT INFORMATION
  Report Type: 
  Country: None (occurrence: None)
  Receive Date: 20050517
  Receipt Date: 20050504
  Transmission Date: 20051028
  Serious: Yes (Other)
  Sender: FDA-Public Use
  Company Number: 2005072143

PATIENT
  Sex: Female
  Weight: 90.7194 kg

DRUGS (2)
  1. CELEBREX [Suspect]
     Indication: ARTHROPATHY
     Dosage: 200 MG (200 MG, 1 IN 1 D), ORAL
     Route: 048
  2. ESOMEPRAZOLE (ESOMEPRAZOLE) [Concomitant]

REACTIONS (6)
  - DYSPNOEA [None]
  - EXTRASYSTOLES [None]
  - FEELING ABNORMAL [None]
  - MUSCLE STRAIN [None]
  - NON-HODGKIN'S LYMPHOMA [None]
  - PALPITATIONS [None]
